FAERS Safety Report 8771444 (Version 5)
Quarter: 2012Q4

REPORT INFORMATION
  Report Type: 
  Country: US (occurrence: US)
  Receive Date: 20120905
  Receipt Date: 20121212
  Transmission Date: 20130627
  Serious: Yes (Life-Threatening, Hospitalization, Other)
  Sender: FDA-Public Use
  Company Number: US-009507513-1109USA00296

PATIENT

DRUGS (4)
  1. FOSAMAX [Suspect]
     Indication: OSTEOPOROSIS
     Dosage: 10 mg, qd
     Route: 048
     Dates: start: 1998, end: 2001
  2. FOSAMAX [Suspect]
     Dosage: 70 mg, qw
     Route: 048
     Dates: start: 2001
  3. FOSAMAX [Suspect]
     Indication: OSTEOPOROSIS
     Dosage: 70 mg, UNK
     Route: 048
     Dates: start: 200803, end: 201003
  4. ALENDRONATE SODIUM [Suspect]
     Indication: OSTEOPOROSIS
     Dosage: 70 mg, UNK
     Route: 048
     Dates: start: 200803, end: 201003

REACTIONS (35)
  - Femur fracture [Recovered/Resolved]
  - Femur fracture [Recovered/Resolved]
  - Fall [Unknown]
  - Open reduction of fracture [Unknown]
  - Pulmonary embolism [Recovered/Resolved]
  - Fall [Unknown]
  - Open reduction of fracture [Unknown]
  - Lower limb fracture [Unknown]
  - Open reduction of fracture [Unknown]
  - Femur fracture [Recovered/Resolved]
  - Nausea [Recovered/Resolved]
  - Vomiting [Recovered/Resolved]
  - Rib fracture [Unknown]
  - Thoracic vertebral fracture [Unknown]
  - Hypothyroidism [Not Recovered/Not Resolved]
  - Hypertension [Unknown]
  - Hypercholesterolaemia [Unknown]
  - Cataract operation [Unknown]
  - Compression fracture [Unknown]
  - Spinal osteoarthritis [Unknown]
  - Hyperlipidaemia [Not Recovered/Not Resolved]
  - Periarthritis [Unknown]
  - Abnormal loss of weight [Unknown]
  - Rectal haemorrhage [Not Recovered/Not Resolved]
  - Carotid bruit [Unknown]
  - Cardiac valve disease [Unknown]
  - Carpal tunnel syndrome [Not Recovered/Not Resolved]
  - Nerve compression [Not Recovered/Not Resolved]
  - Spinal compression fracture [Unknown]
  - Blister [Unknown]
  - Atrial fibrillation [Unknown]
  - Deep vein thrombosis [Unknown]
  - Blood calcium decreased [Unknown]
  - Musculoskeletal discomfort [Recovering/Resolving]
  - Thrombosis [Unknown]
